FAERS Safety Report 19609899 (Version 1)
Quarter: 2021Q3

REPORT INFORMATION
  Report Type: Report from Study
  Country: IT (occurrence: IT)
  Receive Date: 20210726
  Receipt Date: 20210726
  Transmission Date: 20211014
  Serious: No
  Sender: FDA-Public Use
  Company Number: IT-UCBSA-2021035580

PATIENT
  Sex: Male

DRUGS (1)
  1. ROTIGOTINE [Suspect]
     Active Substance: ROTIGOTINE
     Indication: PRODUCT USED FOR UNKNOWN INDICATION
     Dosage: 2MG UNK
     Route: 062

REACTIONS (4)
  - Vomiting [Unknown]
  - Device adhesion issue [Unknown]
  - Skin irritation [Unknown]
  - Nausea [Unknown]
